FAERS Safety Report 4763960-5 (Version None)
Quarter: 2005Q3

REPORT INFORMATION
  Report Type: 
  Country: None (occurrence: None)
  Receive Date: 20050906
  Receipt Date: 20050608
  Transmission Date: 20060218
  Serious: No
  Sender: FDA-Public Use
  Company Number: 2005-BP-09576BP

PATIENT
  Age: 82 Year
  Sex: Male

DRUGS (9)
  1. SPIRIVA [Suspect]
     Indication: CHRONIC OBSTRUCTIVE PULMONARY DISEASE
     Dosage: 18 MCG (18 MCG, 1 IN 1 D), IH
     Route: 055
     Dates: start: 20050601
  2. ADVAIR DISKUS 100/50 [Concomitant]
  3. PREDNISONE [Concomitant]
  4. ACCUPRIL [Concomitant]
  5. CARDIZEM [Concomitant]
  6. LASIX [Concomitant]
  7. FERROUS (FERROUS SULFATE) [Concomitant]
  8. ASPIRIN [Concomitant]
  9. OCUVITE [Concomitant]

REACTIONS (1)
  - NAUSEA [None]
